FAERS Safety Report 9424279 (Version 1)
Quarter: 2013Q3

REPORT INFORMATION
  Report Type: Spontaneous
  Country: US (occurrence: US)
  Receive Date: 20130729
  Receipt Date: 20130729
  Transmission Date: 20140515
  Serious: No
  Sender: FDA-Public Use
  Company Number: US-009507513-1307USA010587

PATIENT
  Age: 18 Year
  Sex: Female
  Weight: 54.42 kg

DRUGS (3)
  1. IMPLANON [Suspect]
     Indication: CONTRACEPTION
     Dosage: EVERY 3 YEARS, 1 ROD
     Route: 059
     Dates: start: 20110107
  2. MELATONIN [Concomitant]
     Dosage: UNK
  3. CELEXA [Concomitant]
     Dosage: UNK

REACTIONS (5)
  - Device dislocation [Unknown]
  - Medical device complication [Unknown]
  - Device kink [Unknown]
  - Menstruation irregular [Unknown]
  - Menorrhagia [Unknown]
